FAERS Safety Report 14323946 (Version 3)
Quarter: 2020Q4

REPORT INFORMATION
  Report Type: Report from Study
  Country: TR (occurrence: TR)
  Receive Date: 20171226
  Receipt Date: 20201129
  Transmission Date: 20210113
  Serious: Yes (Death, Hospitalization)
  Sender: FDA-Public Use
  Company Number: TR-ROCHE-2028912

PATIENT
  Age: 69 Year
  Sex: Male
  Weight: 62.5 kg

DRUGS (26)
  1. SETRON (TURKEY) [Concomitant]
     Indication: NAUSEA
     Route: 042
     Dates: start: 20171116, end: 20171116
  2. EMEND [Concomitant]
     Active Substance: APREPITANT
     Indication: NAUSEA
     Route: 048
     Dates: start: 20171116, end: 20171118
  3. FUROMID [Concomitant]
     Route: 042
     Dates: start: 20171201, end: 20171218
  4. CALCIUM PICKEN [Concomitant]
     Indication: HYPOCALCAEMIA
     Route: 042
     Dates: start: 20171214, end: 20171214
  5. DEKORT [Concomitant]
     Active Substance: DEXAMETHASONE
     Indication: HYPERSENSITIVITY
     Route: 042
     Dates: start: 20171116, end: 20171116
  6. OKSAPAR [Concomitant]
     Indication: DEEP VEIN THROMBOSIS
     Route: 042
     Dates: start: 20171123, end: 20171218
  7. RENTANIL [Concomitant]
     Indication: HYPOTENSION
     Route: 042
     Dates: start: 20171127, end: 20171218
  8. AVIL [Concomitant]
     Active Substance: PHENIRAMINE
     Indication: HYPERSENSITIVITY
     Route: 042
     Dates: start: 20171205, end: 20171205
  9. CISPLATIN. [Suspect]
     Active Substance: CISPLATIN
     Indication: TRANSITIONAL CELL CARCINOMA
     Dosage: MOST RECENT DOSE PRIOR TO SAE ON 16/NOV/2017 (112 MG).
     Route: 042
     Dates: start: 20171116
  10. ULCURAN [Concomitant]
     Active Substance: RANITIDINE HYDROCHLORIDE
     Route: 042
     Dates: start: 20171116, end: 20171116
  11. CARDENOR [Concomitant]
     Indication: HYPOTENSION
     Route: 042
     Dates: start: 20171127, end: 20171208
  12. VASPARIN [Concomitant]
     Indication: DEEP VEIN THROMBOSIS
     Route: 042
     Dates: start: 20171211, end: 20171211
  13. SEROQUEL [Concomitant]
     Active Substance: QUETIAPINE FUMARATE
     Indication: AGITATION
     Route: 042
     Dates: start: 20171129, end: 20171218
  14. VIALEBEX [Concomitant]
     Active Substance: ALBUMIN HUMAN
     Indication: HYPOALBUMINAEMIA
     Route: 042
     Dates: start: 20171130, end: 20171215
  15. LORDES [Concomitant]
     Indication: HYPERSENSITIVITY
     Route: 042
     Dates: start: 20171206, end: 20171206
  16. GEMCITABINE. [Suspect]
     Active Substance: GEMCITABINE
     Indication: TRANSITIONAL CELL CARCINOMA
     Dosage: MOST RECENT DOSE OF GEMCITABINE PRIOR TO SAE- 16/NOV/2017 (1600 MG)
     Route: 042
     Dates: start: 20171116
  17. DIDERAL [Concomitant]
     Active Substance: PROPRANOLOL HYDROCHLORIDE
     Indication: HYPERTENSION
     Route: 048
     Dates: start: 2007, end: 20171219
  18. PROGAS [Concomitant]
     Route: 042
     Dates: start: 20171123, end: 20171218
  19. ATIVAN EXPIDET [Concomitant]
     Indication: INSOMNIA
     Route: 048
     Dates: start: 20171116, end: 20171206
  20. ZYPREXA [Concomitant]
     Active Substance: OLANZAPINE
     Indication: NAUSEA
     Route: 048
     Dates: start: 20171116, end: 20171118
  21. MIKOSTATIN [Concomitant]
     Active Substance: NYSTATIN
     Indication: ORAL CANDIDIASIS
     Route: 048
     Dates: start: 20171123, end: 20171123
  22. SANELOC [Concomitant]
     Active Substance: METOPROLOL
     Indication: TACHYCARDIA
     Route: 048
     Dates: start: 20171127, end: 20171218
  23. MEPOLEX [Concomitant]
     Indication: HYPERTENSION
     Route: 048
     Dates: start: 20171127, end: 20171127
  24. PROPOFOL. [Concomitant]
     Active Substance: PROPOFOL
     Indication: ENDOTRACHEAL INTUBATION
     Route: 042
     Dates: start: 20171127, end: 20171130
  25. RAGASIT [Concomitant]
     Indication: ULCER
     Route: 042
     Dates: start: 20171205, end: 20171205
  26. ATEZOLIZUMAB. [Suspect]
     Active Substance: ATEZOLIZUMAB
     Indication: TRANSITIONAL CELL CARCINOMA
     Dosage: MOST RECENT DOSE PRIOR TO SAE ON 16/NOV/2017
     Route: 042
     Dates: start: 20171116

REACTIONS (2)
  - Acute kidney injury [Recovered/Resolved]
  - Respiratory failure [Fatal]

NARRATIVE: CASE EVENT DATE: 20171118
